FAERS Safety Report 9118290 (Version 1)
Quarter: 2013Q1

REPORT INFORMATION
  Report Type: Spontaneous
  Country: US (occurrence: None)
  Receive Date: 20130221
  Receipt Date: 20130221
  Transmission Date: 20140127
  Serious: Yes (Disabling)
  Sender: FDA-Public Use
  Company Number: None

PATIENT
  Sex: Female
  Weight: 65.77 kg

DRUGS (1)
  1. NICORETTE GUM 4MG GLAXOSMITHKLINE [Suspect]
     Indication: SMOKING CESSATION THERAPY
     Dosage: 1 PIECE EVERY 1 TO 2 HRS

REACTIONS (4)
  - Gingival pain [None]
  - Loose tooth [None]
  - Tooth loss [None]
  - Gingival disorder [None]
